FAERS Safety Report 23747756 (Version 1)
Quarter: 2024Q2

REPORT INFORMATION
  Report Type: Spontaneous
  Country: US (occurrence: None)
  Receive Date: 20240415
  Receipt Date: 20240415
  Transmission Date: 20240716
  Serious: No
  Sender: FDA-Public Use
  Company Number: None

PATIENT
  Age: 24 Year
  Sex: Female
  Weight: 78.75 kg

DRUGS (2)
  1. MONISTAT 1 COMBINATION PACK [Suspect]
     Active Substance: MICONAZOLE NITRATE
     Indication: Infection
     Dosage: FREQUENCY : ONCE;?
     Route: 067
     Dates: start: 20240413, end: 20240413
  2. BIRTH CONTROL (O PILL) [Concomitant]

REACTIONS (2)
  - Burning sensation [None]
  - Pruritus [None]

NARRATIVE: CASE EVENT DATE: 20240413
